FAERS Safety Report 8283485-2 (Version None)
Quarter: 2012Q2

REPORT INFORMATION
  Report Type: 
  Country: None (occurrence: None)
  Receive Date: 20120413
  Receipt Date: 20120404
  Transmission Date: 20120825
  Serious: Yes (Other)
  Sender: FDA-Public Use
  Company Number: CHPA2012DE005208

PATIENT
  Age: 65 Year
  Sex: Female

DRUGS (1)
  1. OTRIVIN [Suspect]
     Dosage: UNK DF, QD FOR 40 YEARS EVERY EVENING
     Dates: end: 20040101

REACTIONS (5)
  - REBOUND EFFECT [None]
  - DRUG DEPENDENCE [None]
  - NASAL CONGESTION [None]
  - INCORRECT DRUG ADMINISTRATION DURATION [None]
  - EPISTAXIS [None]
